FAERS Safety Report 11280219 (Version 1)
Quarter: 2015Q3

REPORT INFORMATION
  Report Type: Spontaneous
  Country: US (occurrence: US)
  Receive Date: 20150717
  Receipt Date: 20150717
  Transmission Date: 20151125
  Serious: Yes (Other)
  Sender: FDA-Public Use
  Company Number: US-JNJFOC-20130717925

PATIENT
  Age: 35 Year
  Sex: Female

DRUGS (6)
  1. GRANULOCYTE-COLONY STIMULATING FACTOR [Concomitant]
     Active Substance: FILGRASTIM
     Route: 065
  2. THIOTEPA. [Suspect]
     Active Substance: THIOTEPA
     Indication: PLASMA CELL MYELOMA
     Route: 042
  3. THIOTEPA. [Suspect]
     Active Substance: THIOTEPA
     Indication: PLASMA CELL MYELOMA
     Dosage: FOR 3 DAYS FROM DAYS -5 TO -3
     Route: 042
  4. ANTI-THYMOCYTE GLOBULIN (RABBIT) NOS [Suspect]
     Active Substance: LAPINE T-LYMPHOCYTE IMMUNE GLOBULIN
     Indication: PLASMA CELL MYELOMA
     Dosage: DAY - 5 ONLY
     Route: 065
  5. CLADRIBINE. [Suspect]
     Active Substance: CLADRIBINE
     Indication: PLASMA CELL MYELOMA
     Dosage: FOR 5 DAYS FROM DAYS -10 TO -6
     Route: 042
  6. CYCLOSPORINE. [Concomitant]
     Active Substance: CYCLOSPORINE
     Indication: TRANSPLANT
     Dosage: LOADING AT 2.5 MG/KG, TWICE A DAY ON DAY 1, THEN 1.5 MG/KG TWICE A DAY
     Route: 042

REACTIONS (5)
  - Thrombocytopenia [Unknown]
  - Anaemia [Unknown]
  - Product use issue [Unknown]
  - Plasma cell myeloma [Unknown]
  - Neutropenia [Unknown]
